FAERS Safety Report 4558734-4 (Version None)
Quarter: 2005Q1

REPORT INFORMATION
  Report Type: 
  Country: None (occurrence: None)
  Receive Date: 20050119
  Receipt Date: 20050107
  Transmission Date: 20050727
  Serious: Yes (Other)
  Sender: FDA-Public Use
  Company Number: 200416248BCC

PATIENT
  Age: 29 Year
  Sex: Female
  Weight: 91.173 kg

DRUGS (7)
  1. ALEVE (CAPLET) [Suspect]
     Indication: HEADACHE
     Dosage: SEE IMAGE, ORAL
     Route: 048
  2. ALEVE (CAPLET) [Suspect]
     Indication: MUSCLE SPASMS
     Dosage: SEE IMAGE, ORAL
     Route: 048
  3. ALEVE (CAPLET) [Suspect]
     Indication: HEADACHE
     Dosage: SEE IMAGE, ORAL
     Route: 048
     Dates: start: 20041221
  4. ALEVE (CAPLET) [Suspect]
     Indication: MUSCLE SPASMS
     Dosage: SEE IMAGE, ORAL
     Route: 048
     Dates: start: 20041221
  5. ALEVE (CAPLET) [Suspect]
     Indication: HEADACHE
     Dosage: SEE IMAGE, ORAL
     Route: 048
     Dates: start: 20041222
  6. ALEVE (CAPLET) [Suspect]
     Indication: MUSCLE SPASMS
     Dosage: SEE IMAGE, ORAL
     Route: 048
     Dates: start: 20041222
  7. ALBUTEROL [Concomitant]

REACTIONS (5)
  - CHEST PAIN [None]
  - DIZZINESS [None]
  - HEART RATE INCREASED [None]
  - MASS [None]
  - PAIN [None]
